FAERS Safety Report 5352808-6 (Version None)
Quarter: 2007Q2

REPORT INFORMATION
  Report Type: 
  Country: None (occurrence: None)
  Receive Date: 20070611
  Receipt Date: 20070531
  Transmission Date: 20071010
  Serious: No
  Sender: FDA-Public Use
  Company Number: US-ASTRAZENECA-2006UW08170

PATIENT
  Age: 4346 Day
  Sex: Female
  Weight: 97.7 kg

DRUGS (7)
  1. SEROQUEL [Suspect]
     Indication: SCHIZOPHRENIA
     Route: 048
     Dates: start: 20010911, end: 20060101
  2. SEROQUEL [Suspect]
     Indication: BIPOLAR DISORDER
     Route: 048
     Dates: start: 20010911, end: 20060101
  3. SEROQUEL [Suspect]
     Route: 048
     Dates: start: 20010911, end: 20060101
  4. SEROQUEL [Suspect]
     Route: 048
     Dates: start: 20010911, end: 20060101
  5. GEODON [Concomitant]
  6. LITHIUM CARBONATE [Concomitant]
  7. LEXAPRO [Concomitant]

REACTIONS (1)
  - DIABETES MELLITUS [None]
